FAERS Safety Report 8742347 (Version 2)
Quarter: 2013Q4

REPORT INFORMATION
  Report Type: Spontaneous
  Country: JP (occurrence: JP)
  Receive Date: 20120824
  Receipt Date: 20131031
  Transmission Date: 20140711
  Serious: Yes (Other)
  Sender: FDA-Public Use
  Company Number: JP-009507513-2012SP019818

PATIENT
  Age: 62 Year
  Sex: Female

DRUGS (32)
  1. REFLEX [Suspect]
     Indication: DEPRESSION
     Dosage: 15 MG, QD
     Route: 048
     Dates: start: 20110930, end: 20111002
  2. REFLEX [Suspect]
     Dosage: 30 MG, QD
     Route: 048
     Dates: start: 20111003, end: 20111010
  3. REFLEX [Suspect]
     Dosage: 45 MG, QD
     Route: 048
     Dates: start: 20111011, end: 20111029
  4. REFLEX [Suspect]
     Dosage: 30 MG, QD
     Route: 048
     Dates: start: 20111030, end: 20111104
  5. LITHIUM CARBONATE [Concomitant]
     Indication: PRODUCT USED FOR UNKNOWN INDICATION
     Dosage: 1800 MG, QD
     Route: 048
     Dates: start: 20110921
  6. PRAVASTATIN SODIUM [Concomitant]
     Indication: DYSLIPIDAEMIA
     Dosage: 10 MG, QD
     Route: 048
     Dates: end: 20100718
  7. PRAVASTATIN SODIUM [Concomitant]
     Dosage: 5 MG, QD
     Route: 048
     Dates: start: 20100718
  8. AMOXAPINE [Concomitant]
     Indication: DEPRESSION
     Dosage: 50 MG, QD
     Route: 048
     Dates: start: 20110920, end: 20110921
  9. AMOXAPINE [Concomitant]
     Dosage: 75 MG, QD
     Route: 048
     Dates: start: 20110922, end: 20110927
  10. AMOXAPINE [Concomitant]
     Dosage: 150 MG, QD
     Route: 048
     Dates: start: 20110928, end: 20111010
  11. AMOXAPINE [Concomitant]
     Dosage: 100 MG, QD
     Route: 048
     Dates: start: 20111011, end: 20111020
  12. AMOXAPINE [Concomitant]
     Dosage: 50 MG, QD
     Route: 048
     Dates: start: 20111021, end: 20111117
  13. FLUNITRAZEPAM [Concomitant]
     Indication: PRODUCT USED FOR UNKNOWN INDICATION
     Dosage: 1 MG, QD
     Route: 048
  14. MIANSERIN HYDRO. [Concomitant]
     Indication: PRODUCT USED FOR UNKNOWN INDICATION
     Dosage: 20 MG, QD
     Route: 048
     Dates: start: 20110906, end: 20110907
  15. MIANSERIN HYDRO. [Concomitant]
     Dosage: 30 MG, QD
     Route: 048
     Dates: start: 20110908, end: 20110914
  16. MIANSERIN HYDRO. [Concomitant]
     Dosage: 60 MG, QD
     Route: 048
     Dates: start: 20110915, end: 20110929
  17. MIANSERIN HYDRO. [Concomitant]
     Dosage: 30 MG, QD
     Route: 048
     Dates: start: 20110930, end: 20120126
  18. MIANSERIN HYDRO. [Concomitant]
     Dosage: 20 MG, QD
     Route: 048
     Dates: start: 20120127, end: 20120216
  19. VEGETAMIN [Concomitant]
     Indication: PRODUCT USED FOR UNKNOWN INDICATION
     Dosage: 1 DF, QD
     Route: 048
     Dates: start: 20110824, end: 20110914
  20. VEGETAMIN [Concomitant]
     Dosage: 3 DF, QD
     Route: 048
     Dates: start: 20110915, end: 20111020
  21. VEGETAMIN [Concomitant]
     Dosage: 2 DF, QD
     Route: 048
     Dates: start: 20111021, end: 20111215
  22. QUETIAPINE FUMARATE [Concomitant]
     Indication: DEPRESSION
     Dosage: 75 MG, QD
     Route: 048
     Dates: start: 20110922, end: 20110929
  23. QUETIAPINE FUMARATE [Concomitant]
     Dosage: 50 MG, QD
     Route: 048
     Dates: start: 20110930, end: 20111004
  24. QUETIAPINE FUMARATE [Concomitant]
     Dosage: 25 MG, QD
     Route: 048
     Dates: start: 20111004, end: 20111010
  25. SERTRALINE HYDROCHLORIDE [Concomitant]
     Indication: DEPRESSION
     Dosage: 25 MG, QD
     Route: 048
     Dates: start: 20110809, end: 20110816
  26. SERTRALINE HYDROCHLORIDE [Concomitant]
     Dosage: 50 MG, QD
     Route: 048
     Dates: start: 20110817, end: 20110824
  27. SERTRALINE HYDROCHLORIDE [Concomitant]
     Dosage: 100 MG, QD
     Route: 048
     Dates: start: 20110824, end: 20110929
  28. SERTRALINE HYDROCHLORIDE [Concomitant]
     Dosage: 50 MG, QD
     Route: 048
     Dates: start: 20110930, end: 20111002
  29. BIPERIDEN [Concomitant]
     Indication: EXTRAPYRAMIDAL DISORDER
     Dosage: 3 MG, QD
     Route: 048
     Dates: start: 20110914, end: 20111010
  30. BIPERIDEN [Concomitant]
     Dosage: 2 MG, QD
     Route: 048
     Dates: start: 20111011, end: 20111020
  31. BIPERIDEN [Concomitant]
     Dosage: 1 MG, QD
     Route: 048
     Dates: start: 20111021, end: 20111117
  32. MAGNESIUM OXIDE [Concomitant]
     Indication: CONSTIPATION
     Dosage: 1500 MG, QD
     Route: 048
     Dates: start: 20110920, end: 20110923

REACTIONS (1)
  - Liver disorder [Recovered/Resolved]
